FAERS Safety Report 15584594 (Version 1)
Quarter: 2018Q4

REPORT INFORMATION
  Report Type: Report from Study
  Country: IN (occurrence: IN)
  Receive Date: 20181102
  Receipt Date: 20181102
  Transmission Date: 20190205
  Serious: Yes (Other)
  Sender: FDA-Public Use
  Company Number: PHHY2018IN142780

PATIENT
  Age: 48 Year
  Sex: Female
  Weight: 65 kg

DRUGS (2)
  1. TRAVATAN [Suspect]
     Active Substance: TRAVOPROST
     Indication: GLAUCOMA
     Dosage: 5 ML, UNK
     Route: 047
  2. AZOPT [Suspect]
     Active Substance: BRINZOLAMIDE
     Indication: GLAUCOMA
     Dosage: 5 ML, UNK
     Route: 047

REACTIONS (5)
  - Typhoid fever [Recovered/Resolved]
  - Intraocular pressure increased [Unknown]
  - Eye discharge [Not Recovered/Not Resolved]
  - Renal disorder [Unknown]
  - Chromaturia [Recovered/Resolved with Sequelae]
